FAERS Safety Report 8778014 (Version 1)
Quarter: 2012Q4

REPORT INFORMATION
  Report Type: 
  Country: US (occurrence: US)
  Receive Date: 20120911
  Receipt Date: 20120911
  Transmission Date: 20130627
  Serious: No
  Sender: FDA-Public Use
  Company Number: US-PFIZER INC-2012221456

PATIENT
  Age: 86 Year
  Sex: Male
  Weight: 68.03 kg

DRUGS (2)
  1. CELEBREX [Suspect]
     Indication: BACK PAIN
     Dosage: 200 mg, 1x/day
     Route: 048
     Dates: start: 20120820, end: 20120905
  2. CELEBREX [Suspect]
     Indication: SPINAL COLUMN STENOSIS

REACTIONS (1)
  - Rash pruritic [Not Recovered/Not Resolved]
